FAERS Safety Report 7428627-3 (Version None)
Quarter: 2011Q2

REPORT INFORMATION
  Report Type: 
  Country: None (occurrence: None)
  Receive Date: 20110415
  Receipt Date: 20110415
  Transmission Date: 20111010
  Serious: Yes (Life-Threatening, Hospitalization)
  Sender: FDA-Public Use
  Company Number: None

PATIENT
  Age: 71 Year
  Sex: Male
  Weight: 162.3 kg

DRUGS (1)
  1. IODIXANOL [Suspect]
     Indication: DIAGNOSTIC PROCEDURE
     Dosage: 70 ML ONCE IV
     Route: 042
     Dates: start: 20110324, end: 20110324

REACTIONS (3)
  - CARDIAC ARREST [None]
  - RESPIRATORY FAILURE [None]
  - ANAPHYLACTIC REACTION [None]
